FAERS Safety Report 7788090-X (Version None)
Quarter: 2011Q3

REPORT INFORMATION
  Report Type: 
  Country: None (occurrence: None)
  Receive Date: 20110930
  Receipt Date: 20110920
  Transmission Date: 20111222
  Serious: Yes (Hospitalization)
  Sender: FDA-Public Use
  Company Number: US-BAYER-2011-050482

PATIENT
  Age: 22 Year
  Sex: Female
  Weight: 95.238 kg

DRUGS (6)
  1. IBUPROFEN [Concomitant]
     Dosage: 200 MG, TID
     Route: 048
     Dates: start: 20090601, end: 20090801
  2. PRENATAL VITAMINS [Concomitant]
     Dosage: 1 DF, QD
     Route: 048
     Dates: start: 20081201, end: 20090801
  3. PRILOSEC [Concomitant]
     Dosage: 20 MG, OM
     Route: 048
     Dates: start: 20091026
  4. CIPROFLOXACIN [Concomitant]
     Dosage: 500 MG, BID
     Route: 048
     Dates: start: 20091026
  5. FERROUS SULFATE TAB [Concomitant]
     Indication: BLOOD IRON DECREASED
     Dosage: 1 DF, QD
     Route: 048
     Dates: start: 20090601, end: 20090801
  6. DROSPIRENONE AND ETHINYL ESTRADIOL [Suspect]
     Indication: CONTRACEPTION
     Dosage: UNK
     Dates: start: 20090914, end: 20091001

REACTIONS (6)
  - INJURY [None]
  - CHOLECYSTITIS ACUTE [None]
  - CHOLELITHIASIS [None]
  - PAIN [None]
  - GALLBLADDER DISORDER [None]
  - CHOLECYSTITIS CHRONIC [None]
